FAERS Safety Report 13404019 (Version 1)
Quarter: 2017Q2

REPORT INFORMATION
  Report Type: Spontaneous
  Country: US (occurrence: US)
  Receive Date: 20170405
  Receipt Date: 20170405
  Transmission Date: 20170830
  Serious: No
  Sender: FDA-Public Use
  Company Number: None

PATIENT

DRUGS (2)
  1. CYTOXAN [Suspect]
     Active Substance: CYCLOPHOSPHAMIDE
     Route: 048
  2. CYTOTEC [Suspect]
     Active Substance: MISOPROSTOL
     Route: 048

REACTIONS (3)
  - Product name confusion [None]
  - Transcription medication error [None]
  - Intercepted product selection error [None]
